FAERS Safety Report 16594497 (Version 1)
Quarter: 2019Q3

REPORT INFORMATION
  Report Type: Spontaneous
  Country: AU (occurrence: AU)
  Receive Date: 20190718
  Receipt Date: 20190718
  Transmission Date: 20191004
  Serious: Yes (Hospitalization)
  Sender: FDA-Public Use
  Company Number: PHHY2019AU162307

PATIENT

DRUGS (1)
  1. PARACETAMOL [Suspect]
     Active Substance: ACETAMINOPHEN
     Indication: PAIN
     Dosage: 8.33 G, QD
     Route: 065

REACTIONS (4)
  - Alanine aminotransferase increased [Unknown]
  - Nausea [Unknown]
  - Abdominal pain [Unknown]
  - Overdose [Unknown]
